FAERS Safety Report 4694351-3 (Version None)
Quarter: 2005Q2

REPORT INFORMATION
  Report Type: 
  Country: None (occurrence: None)
  Receive Date: 20050620
  Receipt Date: 20050608
  Transmission Date: 20051028
  Serious: Yes (Other)
  Sender: FDA-Public Use
  Company Number: US-AMGEN-US137886

PATIENT
  Sex: Male

DRUGS (3)
  1. PROCRIT [Suspect]
     Indication: RENAL FAILURE CHRONIC
  2. ANTIHYPERTENSIVE MEDICATION NOS [Concomitant]
  3. ZOCOR [Concomitant]

REACTIONS (3)
  - AMPUTATION [None]
  - DEEP VEIN THROMBOSIS [None]
  - LEG AMPUTATION [None]
